FAERS Safety Report 17131121 (Version 2)
Quarter: 2020Q2

REPORT INFORMATION
  Report Type: Spontaneous
  Country: FR (occurrence: FR)
  Receive Date: 20191209
  Receipt Date: 20200619
  Transmission Date: 20200713
  Serious: Yes (Death)
  Sender: FDA-Public Use
  Company Number: FR-ALSI-201900498

PATIENT
  Age: 84 Year
  Sex: Male

DRUGS (1)
  1. OXYGEN. [Suspect]
     Active Substance: OXYGEN
     Indication: RESPIRATORY DISTRESS
     Route: 055

REACTIONS (3)
  - Product quality issue [Fatal]
  - Death [Fatal]
  - Underdose [Fatal]
